FAERS Safety Report 7491550-2 (Version None)
Quarter: 2011Q2

REPORT INFORMATION
  Report Type: 
  Country: None (occurrence: None)
  Receive Date: 20110519
  Receipt Date: 20110510
  Transmission Date: 20111010
  Serious: Yes (Hospitalization)
  Sender: FDA-Public Use
  Company Number: PHHY2011FR40196

PATIENT
  Sex: Female

DRUGS (9)
  1. PANTOPRAZOLE [Concomitant]
  2. VANCOMYCIN HCL [Suspect]
     Indication: INFUSION SITE DERMATITIS
     Dosage: 1 G, UNK
     Dates: start: 20110411, end: 20110413
  3. PREVISCAN [Concomitant]
     Dosage: 20 MG, UNK
  4. PERINDOPRIL ERBUMINE [Concomitant]
  5. DIFFU K [Concomitant]
  6. DEBRIDAT ^IBRAHIM^ [Concomitant]
  7. CALCIPARINE [Concomitant]
  8. XENETIX [Suspect]
     Indication: ARTERIOGRAM CORONARY
     Dosage: 120 MG, (350 MG IODINE / ML)
     Route: 042
     Dates: start: 20110414, end: 20110414
  9. LASIX [Concomitant]

REACTIONS (2)
  - PRURITUS [None]
  - PETECHIAE [None]
